FAERS Safety Report 5715096-4 (Version None)
Quarter: 2008Q2

REPORT INFORMATION
  Report Type: 
  Country: None (occurrence: None)
  Receive Date: 20080423
  Receipt Date: 20080421
  Transmission Date: 20081010
  Serious: Yes (Death, Hospitalization)
  Sender: FDA-Public Use
  Company Number: US-BOEHRINGER INGELHEIM GMBH, GERMANY-2008-BP-06239BP

PATIENT
  Sex: Male

DRUGS (4)
  1. FLOMAX [Suspect]
     Indication: PROSTATOMEGALY
     Route: 048
  2. AVODART [Suspect]
     Indication: PROSTATOMEGALY
     Route: 048
     Dates: start: 20080306, end: 20080306
  3. ANTIDEPRESSANT [Concomitant]
  4. LEVOTHYROXINE SODIUM [Concomitant]

REACTIONS (8)
  - CERVICAL VERTEBRAL FRACTURE [None]
  - DEATH [None]
  - DIZZINESS [None]
  - FACIAL BONES FRACTURE [None]
  - FALL [None]
  - PARKINSON'S DISEASE [None]
  - PNEUMONIA [None]
  - RENAL FAILURE [None]
